FAERS Safety Report 5643381-3 (Version None)
Quarter: 2008Q1

REPORT INFORMATION
  Report Type: 
  Country: None (occurrence: None)
  Receive Date: 20080228
  Receipt Date: 20080219
  Transmission Date: 20080703
  Serious: Yes (Hospitalization)
  Sender: FDA-Public Use
  Company Number: US-KINGPHARMUSA00001-K200800217

PATIENT

DRUGS (7)
  1. ALTACE [Suspect]
     Indication: DRUG USE FOR UNKNOWN INDICATION
     Dosage: 5 MG, QD
     Route: 048
     Dates: end: 20071107
  2. ALTACE [Interacting]
     Dosage: 2.5 MG, QD
     Route: 048
     Dates: start: 20071108
  3. SELOKEN /00376902/ [Interacting]
     Indication: DRUG USE FOR UNKNOWN INDICATION
     Dosage: 100 MG, QD
     Route: 048
     Dates: end: 20071108
  4. PLAVIX [Concomitant]
     Route: 048
  5. VASTEN /00880402/ [Concomitant]
     Route: 048
  6. CYCLO /00801901/ [Concomitant]
  7. XYZALL /01530201/ [Concomitant]
     Route: 048

REACTIONS (7)
  - DRUG INTERACTION [None]
  - DYSPNOEA EXERTIONAL [None]
  - FALL [None]
  - LOSS OF CONSCIOUSNESS [None]
  - MALAISE [None]
  - ORTHOSTATIC HYPOTENSION [None]
  - TRAUMATIC BRAIN INJURY [None]
